FAERS Safety Report 7764629-5 (Version None)
Quarter: 2011Q3

REPORT INFORMATION
  Report Type: 
  Country: None (occurrence: None)
  Receive Date: 20110921
  Receipt Date: 20110907
  Transmission Date: 20111222
  Serious: Yes (Other)
  Sender: FDA-Public Use
  Company Number: PHHY2011DE73666

PATIENT
  Sex: Male
  Weight: 85 kg

DRUGS (3)
  1. RASILEZ [Suspect]
     Indication: HYPERTENSION
     Dosage: 300 MG, DAILY
     Route: 048
     Dates: start: 20110728, end: 20110801
  2. OMEGA-3-ACID ETHYL ESTERS [Concomitant]
     Indication: HYPERCHOLESTEROLAEMIA
     Dosage: 1000 MG, PER DAY
     Route: 048
  3. BISOPROLOL FUMARATE [Concomitant]
     Indication: HYPERTENSION
     Dosage: 1.25 MG/DAY
     Route: 048

REACTIONS (2)
  - HYPERTENSIVE CRISIS [None]
  - BLOOD PRESSURE SYSTOLIC INCREASED [None]
